FAERS Safety Report 11755436 (Version 1)
Quarter: 2015Q4

REPORT INFORMATION
  Report Type: Other
  Country: FR (occurrence: FR)
  Receive Date: 20151119
  Receipt Date: 20151119
  Transmission Date: 20160304
  Serious: Yes (Hospitalization)
  Sender: FDA-Public Use
  Company Number: FR-WARNER CHILCOTT, LLC-1044435

PATIENT
  Age: 58 Year
  Sex: Male

DRUGS (13)
  1. ROVALCYTE [Suspect]
     Active Substance: VALGANCICLOVIR HYDROCHLORIDE
     Route: 048
     Dates: start: 201509
  2. PROGRAF [Concomitant]
     Active Substance: TACROLIMUS\TACROLIMUS ANHYDROUS
     Dates: start: 201501
  3. CORTANCYL [Concomitant]
     Active Substance: PREDNISONE
     Dates: start: 201501
  4. EUPANTOL [Suspect]
     Active Substance: PANTOPRAZOLE SODIUM
     Route: 048
     Dates: end: 20151022
  5. DELURSAN [Concomitant]
     Active Substance: URSODIOL
  6. CELLCEPT [Suspect]
     Active Substance: MYCOPHENOLATE MOFETIL\MYCOPHENOLATE MOFETIL HYDROCHLORIDE
     Route: 048
     Dates: start: 201501, end: 20151022
  7. OFLOCET [Suspect]
     Active Substance: OFLOXACIN
     Route: 048
     Dates: start: 20150930, end: 20151022
  8. AVLOCARDYL [Concomitant]
     Active Substance: PROPRANOLOL HYDROCHLORIDE
  9. CERIS [Concomitant]
     Active Substance: TROSPIUM CHLORIDE
  10. VITAMIN K [Concomitant]
     Active Substance: PHYTONADIONE
     Dates: start: 201507
  11. ACTONEL [Suspect]
     Active Substance: RISEDRONATE SODIUM
     Route: 048
     Dates: end: 20151022
  12. KARDEGIC [Concomitant]
     Active Substance: ASPIRIN LYSINE
  13. LOVENOX [Concomitant]
     Active Substance: ENOXAPARIN SODIUM

REACTIONS (4)
  - Thrombocytopenia [Recovering/Resolving]
  - Neutropenia [Recovering/Resolving]
  - Anaemia [Recovering/Resolving]
  - Agranulocytosis [Recovered/Resolved]
